FAERS Safety Report 23393261 (Version 1)
Quarter: 2024Q1

REPORT INFORMATION
  Report Type: Spontaneous
  Country: US (occurrence: US)
  Receive Date: 20240111
  Receipt Date: 20240111
  Transmission Date: 20240410
  Serious: No
  Sender: FDA-Public Use
  Company Number: US-BIOVITRUM-2023-US-013424

PATIENT
  Age: 60 Year
  Sex: Male

DRUGS (1)
  1. KINERET [Suspect]
     Active Substance: ANAKINRA
     Indication: Tumour necrosis factor receptor-associated periodic syndrome
     Dosage: 100 MG DAILY, QF
     Route: 058
     Dates: start: 2010

REACTIONS (5)
  - Off label use [Recovered/Resolved]
  - Product use issue [Unknown]
  - Product dose omission issue [Unknown]
  - Intentional dose omission [Unknown]
  - Infection [Unknown]

NARRATIVE: CASE EVENT DATE: 20100101
